FAERS Safety Report 14315313 (Version 2)
Quarter: 2018Q1

REPORT INFORMATION
  Report Type: Report from Study
  Country: EC (occurrence: EC)
  Receive Date: 20171221
  Receipt Date: 20180307
  Transmission Date: 20180509
  Serious: Yes (Other)
  Sender: FDA-Public Use
  Company Number: EC-REGENERON PHARMACEUTICALS, INC.-2017-29522

PATIENT

DRUGS (2)
  1. EYLEA [Suspect]
     Active Substance: AFLIBERCEPT
     Indication: AGE-RELATED MACULAR DEGENERATION
     Dosage: 2 MG, Q2MON ( TOTAL NUMBER OF DOSES 11 OS AND 16 OD)
     Dates: start: 20151212
  2. EYLEA [Suspect]
     Active Substance: AFLIBERCEPT
     Dosage: MOST RECENT DOSE, BOTH EYES
     Dates: start: 20171204, end: 20171204

REACTIONS (7)
  - Myopia [Recovering/Resolving]
  - Blindness transient [Recovered/Resolved]
  - Surgery [Unknown]
  - Cataract [Recovered/Resolved]
  - Injection site pain [Not Recovered/Not Resolved]
  - Ocular hyperaemia [Recovered/Resolved]
  - Vision blurred [Not Recovered/Not Resolved]

NARRATIVE: CASE EVENT DATE: 20151212
